APPROVED DRUG PRODUCT: FLOXIN
Active Ingredient: OFLOXACIN
Strength: 20MG/ML
Dosage Form/Route: INJECTABLE;INJECTION
Application: N020087 | Product #002
Applicant: ORTHO MCNEIL PHARMACEUTICAL INC
Approved: Mar 31, 1992 | RLD: No | RS: No | Type: DISCN